FAERS Safety Report 9483675 (Version 2)
Quarter: 2013Q3

REPORT INFORMATION
  Report Type: Spontaneous
  Country: CA (occurrence: CA)
  Receive Date: 20130828
  Receipt Date: 20130828
  Transmission Date: 20140515
  Serious: Yes (Hospitalization)
  Sender: FDA-Public Use
  Company Number: CA-AMGEN-KDL286748

PATIENT
  Age: 76 Year
  Sex: Male

DRUGS (3)
  1. ENBREL [Suspect]
     Indication: RHEUMATOID ARTHRITIS
     Dosage: UNK UNK, 2 TIMES/WK
     Route: 058
     Dates: start: 19980101
  2. METHOTREXATE [Concomitant]
     Dosage: UNK UNK, UNK
     Route: 048
  3. UNSPECIFIED NON-STEROIDAL ANTI-INFLAMMATORY AGENT [Concomitant]
     Dosage: UNK UNK, UNK

REACTIONS (1)
  - Meningitis staphylococcal [Unknown]
